FAERS Safety Report 6016668-2 (Version None)
Quarter: 2008Q4

REPORT INFORMATION
  Report Type: 
  Country: None (occurrence: None)
  Receive Date: 20081222
  Receipt Date: 20081218
  Transmission Date: 20090506
  Serious: Yes (Life-Threatening, Hospitalization)
  Sender: FDA-Public Use
  Company Number: PHHY2008DE32636

PATIENT
  Age: 72 Year
  Sex: Female
  Weight: 86 kg

DRUGS (6)
  1. RASILEZ [Suspect]
     Indication: HYPERTENSION
     Dosage: 300 MG, QD
     Route: 048
     Dates: start: 20080101, end: 20081102
  2. ALLOPURINOL [Concomitant]
     Dosage: 1 DF, QD
  3. KALINOR RETARD [Concomitant]
     Dosage: 1 DF, QD
  4. APROVEL [Concomitant]
     Dosage: 1 DF, QD
  5. MARCUMAR [Concomitant]
     Dosage: UNK
     Dates: start: 20010101, end: 20081102
  6. METOPROLOL TARTRATE [Concomitant]
     Dosage: 1 DF, QD

REACTIONS (3)
  - CEREBRAL HAEMORRHAGE [None]
  - HYPERTENSIVE CRISIS [None]
  - PROTHROMBIN TIME PROLONGED [None]
